FAERS Safety Report 20331025 (Version 3)
Quarter: 2022Q1

REPORT INFORMATION
  Report Type: Spontaneous
  Country: US (occurrence: US)
  Receive Date: 20220113
  Receipt Date: 20220209
  Transmission Date: 20220423
  Serious: Yes (Other)
  Sender: FDA-Public Use
  Company Number: US-PFIZER INC-2020009865

PATIENT
  Age: 65 Year
  Sex: Female

DRUGS (1)
  1. PREMARIN [Suspect]
     Active Substance: ESTROGENS, CONJUGATED
     Dosage: UNK; INSERT 0.5 APPLICATOR (S) FUL 3 TIMES A WEEK BY VAGINAL ROUTE AT BEDTIME FOR 90 DAYS
     Route: 067

REACTIONS (4)
  - Neoplasm malignant [Unknown]
  - Off label use [Unknown]
  - Product dispensing error [Unknown]
  - Smear cervix abnormal [Unknown]
